FAERS Safety Report 7188798-3 (Version None)
Quarter: 2010Q4

REPORT INFORMATION
  Report Type: 
  Country: None (occurrence: None)
  Receive Date: 20101222
  Receipt Date: 20100727
  Transmission Date: 20110411
  Serious: No
  Sender: FDA-Public Use
  Company Number: US-AMGEN-KDL427418

PATIENT

DRUGS (6)
  1. ENBREL [Suspect]
     Indication: PRODUCT USED FOR UNKNOWN INDICATION
     Dosage: 25 MG, 2 TIMES/WK
     Route: 058
  2. FUROSEMIDE [Concomitant]
     Dosage: 20 MG, UNK
  3. ALBUTEROL SULFATE [Concomitant]
     Dosage: 90 A?G, UNK
  4. ESOMEPRAZOLE MAGNESIUM [Concomitant]
     Dosage: 20 MG, UNK
  5. AXOTAL [Concomitant]
     Dosage: UNK UNK, UNK
  6. SULFASALAZINE [Concomitant]
     Dosage: 500 MG, UNK

REACTIONS (3)
  - DIARRHOEA [None]
  - INJECTION SITE ERYTHEMA [None]
  - LIP SWELLING [None]
